FAERS Safety Report 7246526-7 (Version None)
Quarter: 2011Q1

REPORT INFORMATION
  Report Type: 
  Country: None (occurrence: None)
  Receive Date: 20110127
  Receipt Date: 20110119
  Transmission Date: 20110831
  Serious: Yes (Other)
  Sender: FDA-Public Use
  Company Number: US-AMGEN-USASP2010006605

PATIENT
  Sex: Female
  Weight: 80.272 kg

DRUGS (4)
  1. ENBREL [Suspect]
     Indication: RHEUMATOID ARTHRITIS
     Dosage: 50 MG, QWK
     Route: 058
     Dates: start: 20050601, end: 20101103
  2. NAPROXEN [Concomitant]
  3. MULTIVITAMIN                       /00097801/ [Concomitant]
  4. ZYRTEC [Concomitant]

REACTIONS (7)
  - ANGIOEDEMA [None]
  - PRURITUS [None]
  - LIP SWELLING [None]
  - MALAISE [None]
  - HYPERSENSITIVITY [None]
  - URTICARIA [None]
  - PULMONARY CONGESTION [None]
